FAERS Safety Report 20220668 (Version 1)
Quarter: 2021Q4

REPORT INFORMATION
  Report Type: Spontaneous
  Country: IN (occurrence: IN)
  Receive Date: 20211223
  Receipt Date: 20211223
  Transmission Date: 20220304
  Serious: No
  Sender: FDA-Public Use
  Company Number: None

PATIENT
  Age: 49 Year
  Sex: Female

DRUGS (8)
  1. MYCOPHENOLATE MOFETIL [Suspect]
     Active Substance: MYCOPHENOLATE MOFETIL
     Indication: Systemic lupus erythematosus
     Dosage: UNK
     Route: 065
     Dates: start: 2016
  2. DENOSUMAB [Concomitant]
     Active Substance: DENOSUMAB
     Indication: Osteoporosis
     Dosage: UNK, EVERY 6 MONTHS
     Route: 065
  3. HYDROXYCHLOROQUINE [Concomitant]
     Active Substance: HYDROXYCHLOROQUINE
     Indication: Systemic lupus erythematosus
     Dosage: 200 MILLIGRAM
     Route: 065
  4. HYDROXYCHLOROQUINE [Concomitant]
     Active Substance: HYDROXYCHLOROQUINE
     Dosage: 300 MILLIGRAM, QD
     Route: 065
     Dates: start: 201512
  5. METHOTREXATE [Concomitant]
     Active Substance: METHOTREXATE
     Indication: Systemic lupus erythematosus
     Dosage: 15-20 MILLIGRAM, ONCE WEEKLY
     Route: 065
     Dates: start: 201512
  6. PREDNISOLONE [Concomitant]
     Active Substance: PREDNISOLONE
     Indication: Systemic lupus erythematosus
     Dosage: 1 MILLIGRAM/KILOGRAM, QD
     Route: 048
     Dates: start: 201512, end: 2016
  7. PREDNISOLONE [Concomitant]
     Active Substance: PREDNISOLONE
     Dosage: 5 MILLIGRAM, QD
     Route: 048
     Dates: start: 2016
  8. PREDNISOLONE [Concomitant]
     Active Substance: PREDNISOLONE
     Dosage: 10 UNK
     Route: 065

REACTIONS (3)
  - Nausea [Unknown]
  - Vomiting [Unknown]
  - Drug intolerance [Unknown]

NARRATIVE: CASE EVENT DATE: 20160101
